FAERS Safety Report 19226888 (Version 2)
Quarter: 2021Q2

REPORT INFORMATION
  Report Type: Spontaneous
  Country: US (occurrence: MX)
  Receive Date: 20210506
  Receipt Date: 20210513
  Transmission Date: 20210717
  Serious: Yes (Death, Other)
  Sender: FDA-Public Use
  Company Number: MX-BIOMARINAP-MX-2021-136357

PATIENT
  Age: 20 Year
  Sex: Male

DRUGS (1)
  1. ALDURAZYME [Suspect]
     Active Substance: LARONIDASE
     Indication: MUCOPOLYSACCHARIDOSIS I
     Dosage: 4 DOSAGE FORM, EVERY 8 DAYS
     Route: 042
     Dates: start: 20070201

REACTIONS (6)
  - Bronchitis [Unknown]
  - Constipation [Recovering/Resolving]
  - Respiratory disorder [Unknown]
  - Hepatic cirrhosis [Fatal]
  - Fluid retention [Unknown]
  - Gastritis [Unknown]

NARRATIVE: CASE EVENT DATE: 20200908
